FAERS Safety Report 9292579 (Version 2)
Quarter: 2013Q3

REPORT INFORMATION
  Report Type: Spontaneous
  Country: US (occurrence: US)
  Receive Date: 20130516
  Receipt Date: 20130927
  Transmission Date: 20140515
  Serious: Yes (Life-Threatening, Disabling)
  Sender: FDA-Public Use
  Company Number: US-BAYER-2013-060682

PATIENT
  Age: 28 Year
  Sex: Female

DRUGS (22)
  1. BEYAZ [Suspect]
  2. GIANVI [Suspect]
  3. YASMIN [Suspect]
  4. OCELLA [Suspect]
  5. YAZ [Suspect]
  6. HYDROCODONE [HYDROCODONE] [Concomitant]
     Dosage: 7.5/500 MG
  7. CEFACLOR [Concomitant]
     Dosage: 500 MG, UNK
  8. MELOXICAM [Concomitant]
     Dosage: 7.5 MG, UNK
  9. ERY-TAB [Concomitant]
     Dosage: 333 MG, UNK
  10. MECLIZINE [Concomitant]
     Dosage: 25 MG, UNK
  11. GLYBURIDE [Concomitant]
     Dosage: 5 MG, UNK
  12. METFORMIN HCL [Concomitant]
     Dosage: 500 MG, UNK
  13. LISINOPRIL [Concomitant]
     Dosage: 5 MG, UNK
  14. SULFAMETHOXAZOLE/TRIMETHOPRIM [Concomitant]
  15. ALBUTEROL [Concomitant]
     Dosage: 90 MCG,
     Route: 045
  16. PREDNISONE [Concomitant]
     Dosage: 10 MG, UNK
  17. METHYLPREDNISOLON [Concomitant]
     Dosage: 4 MG, UNK
  18. NASONEX [Concomitant]
     Dosage: 50 MCG
  19. VALTREX [Concomitant]
     Dosage: 500 MG, UNK
  20. ANTIPYRINE W/BENZOCAINE [Concomitant]
  21. VENTOLINE [Concomitant]
     Route: 045
  22. TRANSDERM-SCOP [Concomitant]
     Dosage: 1.5 MG /72 HOUR

REACTIONS (8)
  - Cerebrovascular accident [None]
  - Pain [None]
  - General physical health deterioration [None]
  - Anxiety [None]
  - Anhedonia [None]
  - Emotional distress [None]
  - Pain [None]
  - Injury [None]
